FAERS Safety Report 12296835 (Version 1)
Quarter: 2016Q2

REPORT INFORMATION
  Report Type: Spontaneous
  Country: JP (occurrence: JP)
  Receive Date: 20160422
  Receipt Date: 20160422
  Transmission Date: 20160815
  Serious: Yes (Hospitalization)
  Sender: FDA-Public Use
  Company Number: PHJP1997JP001036

PATIENT
  Age: 44 Year
  Sex: Male
  Weight: 50 kg

DRUGS (4)
  1. SANDIMMUN SIM+CAP [Suspect]
     Active Substance: CYCLOSPORINE
     Indication: PRODUCT USED FOR UNKNOWN INDICATION
     Route: 048
     Dates: start: 19871027, end: 19871103
  2. BREDININ [Concomitant]
     Active Substance: MIZORIBINE
     Indication: BEHCET^S SYNDROME
     Route: 048
     Dates: start: 1987
  3. SANDIMMUN [Suspect]
     Active Substance: CYCLOSPORINE
     Indication: PRODUCT USED FOR UNKNOWN INDICATION
     Route: 048
     Dates: start: 19950105, end: 19950125
  4. COLCHICINE. [Concomitant]
     Active Substance: COLCHICINE
     Indication: BEHCET^S SYNDROME
     Route: 048
     Dates: start: 1987

REACTIONS (1)
  - Behcet^s syndrome [Recovering/Resolving]

NARRATIVE: CASE EVENT DATE: 19950111
